FAERS Safety Report 21999110 (Version 1)
Quarter: 2023Q1

REPORT INFORMATION
  Report Type: Spontaneous
  Country: US (occurrence: US)
  Receive Date: 20230216
  Receipt Date: 20230216
  Transmission Date: 20230418
  Serious: No
  Sender: FDA-Public Use
  Company Number: US-SA-SAC20230215000585

PATIENT
  Age: 52 Year
  Sex: Female

DRUGS (2)
  1. AMBIEN [Suspect]
     Active Substance: ZOLPIDEM TARTRATE
     Dosage: UNK
     Route: 065
  2. PAXLOVID [Concomitant]
     Active Substance: NIRMATRELVIR\RITONAVIR
     Dosage: UNK

REACTIONS (12)
  - Pruritus [Not Recovered/Not Resolved]
  - Palpitations [Not Recovered/Not Resolved]
  - Skin exfoliation [Not Recovered/Not Resolved]
  - Dyspnoea [Unknown]
  - Dehydration [Unknown]
  - Cough [Unknown]
  - Muscle spasms [Unknown]
  - Sinusitis [Unknown]
  - Paranasal sinus hyposecretion [Not Recovered/Not Resolved]
  - Dry throat [Not Recovered/Not Resolved]
  - Speech disorder [Not Recovered/Not Resolved]
  - Pharyngeal swelling [Not Recovered/Not Resolved]
